FAERS Safety Report 5750983-2 (Version None)
Quarter: 2008Q2

REPORT INFORMATION
  Report Type: 
  Country: None (occurrence: None)
  Receive Date: 20080528
  Receipt Date: 20080519
  Transmission Date: 20081010
  Serious: Yes (Hospitalization)
  Sender: FDA-Public Use
  Company Number: FR-ASTRAZENECA-2008CG00736

PATIENT
  Age: 83 Year
  Sex: Male

DRUGS (5)
  1. ATACAND [Suspect]
     Route: 048
  2. LASILIX [Suspect]
     Route: 048
  3. PLAVIX [Suspect]
     Indication: THROMBOSIS PROPHYLAXIS
     Route: 048
  4. HYPERIUM [Suspect]
     Route: 048
  5. UMULINE [Suspect]
     Indication: TYPE 1 DIABETES MELLITUS
     Route: 058

REACTIONS (5)
  - BLOOD LACTATE DEHYDROGENASE INCREASED [None]
  - BUNDLE BRANCH BLOCK RIGHT [None]
  - DRUG RASH WITH EOSINOPHILIA AND SYSTEMIC SYMPTOMS [None]
  - ESCHERICHIA URINARY TRACT INFECTION [None]
  - HYPERTHERMIA [None]
